FAERS Safety Report 20854750 (Version 4)
Quarter: 2022Q2

REPORT INFORMATION
  Report Type: Spontaneous
  Country: US (occurrence: US)
  Receive Date: 20220520
  Receipt Date: 20220616
  Transmission Date: 20220721
  Serious: No
  Sender: FDA-Public Use
  Company Number: US-PFIZER INC-202200738835

PATIENT
  Age: 77 Year
  Sex: Female

DRUGS (1)
  1. IBRANCE [Suspect]
     Active Substance: PALBOCICLIB
     Dosage: UNK
     Dates: start: 20220515

REACTIONS (6)
  - Hypoaesthesia [Unknown]
  - Hypoaesthesia oral [Unknown]
  - Nausea [Unknown]
  - Diarrhoea [Unknown]
  - Alopecia [Unknown]
  - White blood cell count decreased [Unknown]
